FAERS Safety Report 10429713 (Version 1)
Quarter: 2014Q3

REPORT INFORMATION
  Report Type: Spontaneous
  Country: JP (occurrence: None)
  Receive Date: 20140801
  Receipt Date: 20140801
  Transmission Date: 20150326
  Serious: Yes (Other)
  Sender: FDA-Public Use
  Company Number: 2014-09606

PATIENT
  Age: 97 Year
  Sex: Male

DRUGS (12)
  1. RAPAFLO [Suspect]
     Active Substance: SILODOSIN
     Indication: BLADDER OUTLET OBSTRUCTION
     Dates: start: 201311
  2. CARBOCISTEINE [Concomitant]
     Active Substance: CARBOCYSTEINE
  3. RAPAFLO [Suspect]
     Active Substance: SILODOSIN
     Indication: BENIGN PROSTATIC HYPERPLASIA
     Dates: start: 201311
  4. CLARITH (CLARITHROMYCIN) [Concomitant]
  5. MEXITIL (MEXILETINE HYDROCHLORIDE) [Concomitant]
  6. LANSOPRAZOLE. [Concomitant]
     Active Substance: LANSOPRAZOLE
  7. PURSENNID /00142207/ (SENNA ALEXANDRINA LEAF) [Concomitant]
  8. MUCODYNE (CARBOCISTEINE) [Concomitant]
     Active Substance: CARBOCYSTEINE
  9. SIGMART (NICORANDIL) [Concomitant]
     Active Substance: NICORANDIL
  10. HOKUNALIN /00654901/ (TULOBUTEROL) [Concomitant]
  11. MAGMITT (MAGNESIUM OXIDE) [Concomitant]
     Active Substance: MAGNESIUM OXIDE
  12. TSUMURA CHOREITO (HERBAL EXTRACT NOS, MEPYRAMINE MALEATE, PHENIRAMINE MALEATE, PHENYLPROPANOLAMINE, PHENYLTOLOXAMINE CITRATE0 [Concomitant]

REACTIONS (1)
  - Liver function test abnormal [None]

NARRATIVE: CASE EVENT DATE: 20140421
